FAERS Safety Report 15200272 (Version 3)
Quarter: 2018Q3

REPORT INFORMATION
  Report Type: Spontaneous
  Country: US (occurrence: US)
  Receive Date: 20180726
  Receipt Date: 20180914
  Transmission Date: 20181010
  Serious: Yes (Other)
  Sender: FDA-Public Use
  Company Number: US-009507513-1807USA007005

PATIENT
  Age: 79 Year
  Sex: Female

DRUGS (15)
  1. AMANTADINE. [Suspect]
     Active Substance: AMANTADINE HYDROCHLORIDE
     Indication: DYSKINESIA
     Dosage: DOSE: 68.5 MG, HS (FORMULATION: EXTENDED RELEASE)
     Route: 048
     Dates: start: 201805, end: 2018
  2. AMANTADINE. [Suspect]
     Active Substance: AMANTADINE HYDROCHLORIDE
     Dosage: DOSE: 68.5 MG, HS (FORMULATION: EXTENDED RELEASE)
     Route: 048
     Dates: start: 20180518, end: 20180531
  3. ROBITUSSIN (GUAIFENESIN) [Concomitant]
     Active Substance: GUAIFENESIN
     Dosage: UNK
  4. ACIDOPHILUS [Concomitant]
     Active Substance: LACTOBACILLUS ACIDOPHILUS
     Dosage: UNK
     Route: 048
  5. AMLODIPINE [Concomitant]
     Active Substance: AMLODIPINE BESYLATE
     Dosage: UNK
     Route: 048
  6. MONUROL [Concomitant]
     Active Substance: FOSFOMYCIN TROMETHAMINE
     Dosage: UNK
  7. RYTARY [Suspect]
     Active Substance: CARBIDOPA\LEVODOPA
     Dosage: UNK
     Route: 048
  8. AMANTADINE. [Suspect]
     Active Substance: AMANTADINE HYDROCHLORIDE
     Dosage: DOSE: 68.5 MG, AS DIRECTED AT BEDTIME 2 DAYS ON AND 1 DAY OFF (FORMULATION: EXTENDED RELEASE)
     Route: 048
     Dates: start: 201806, end: 2018
  9. METOPROLOL. [Concomitant]
     Active Substance: METOPROLOL
     Dosage: UNK
  10. AMANTADINE. [Suspect]
     Active Substance: AMANTADINE HYDROCHLORIDE
     Dosage: DOSE: 68.5 MG, AS DIRECTED AT BEDTIME 2 DAYS ON AND 1 DAY OFF (FORMULATION: EXTENDED RELEASE)
     Route: 048
     Dates: start: 2018, end: 201806
  11. TYLENOL [Concomitant]
     Active Substance: ACETAMINOPHEN
     Dosage: UNK
     Route: 048
  12. AMANTADINE. [Suspect]
     Active Substance: AMANTADINE HYDROCHLORIDE
     Dosage: DOSE: 68.5 MG , EVERY 48 HOURS (FORMULATION: EXTENDED RELEASE)
     Route: 048
     Dates: start: 2018, end: 2018
  13. SINEMET [Suspect]
     Active Substance: CARBIDOPA\LEVODOPA
     Dosage: UNK
     Route: 048
  14. AMANTADINE. [Suspect]
     Active Substance: AMANTADINE HYDROCHLORIDE
     Dosage: DOSE: 68.5 MG, HS (FORMULATION: EXTENDED RELEASE)
     Route: 048
     Dates: start: 2018, end: 201807
  15. CARBIDOPA (+) LEVODOPA [Concomitant]
     Active Substance: CARBIDOPA\LEVODOPA
     Dosage: UNK
     Route: 048

REACTIONS (36)
  - Viral infection [Unknown]
  - Dystonia [Recovered/Resolved]
  - Dyskinesia [Unknown]
  - Adverse reaction [Unknown]
  - Musculoskeletal discomfort [Unknown]
  - Retinal vascular occlusion [Unknown]
  - Blood pressure decreased [Unknown]
  - Malaise [Unknown]
  - Dry mouth [Unknown]
  - Blindness day [Unknown]
  - Adverse event [Unknown]
  - Poor quality sleep [Unknown]
  - Pain [Unknown]
  - Drug effect decreased [Not Recovered/Not Resolved]
  - Hypertonic bladder [Not Recovered/Not Resolved]
  - Drug intolerance [Unknown]
  - Eye operation [Unknown]
  - Fall [Unknown]
  - Paraesthesia [Unknown]
  - Cataract [Recovered/Resolved]
  - Musculoskeletal chest pain [Unknown]
  - Nasopharyngitis [Not Recovered/Not Resolved]
  - Restlessness [Not Recovered/Not Resolved]
  - Dizziness [Unknown]
  - Parkinson^s disease [Unknown]
  - Lip disorder [Unknown]
  - Oropharyngeal pain [Unknown]
  - Cerebrovascular accident [Unknown]
  - Arthralgia [Unknown]
  - Night sweats [Not Recovered/Not Resolved]
  - Feeling abnormal [Not Recovered/Not Resolved]
  - Vision blurred [Recovered/Resolved]
  - Hyperhidrosis [Not Recovered/Not Resolved]
  - Agitation [Not Recovered/Not Resolved]
  - Anxiety [Unknown]
  - Confusional state [Unknown]

NARRATIVE: CASE EVENT DATE: 2018
